FAERS Safety Report 26102517 (Version 1)
Quarter: 2025Q4

REPORT INFORMATION
  Report Type: Spontaneous
  Country: EU (occurrence: EU)
  Receive Date: 20251128
  Receipt Date: 20251128
  Transmission Date: 20260117
  Serious: Yes (Life-Threatening, Hospitalization)
  Sender: TEVA
  Company Number: None

PATIENT
  Age: 52 Year
  Sex: Female
  Weight: 94 kg

DRUGS (2)
  1. ASPIRIN [Suspect]
     Active Substance: ASPIRIN
     Indication: Acute myocardial infarction
     Dosage: 1DD1, BRAND NAME NOT SPECIFIED
     Route: 048
     Dates: start: 20250103
  2. TICAGRELOR [Suspect]
     Active Substance: TICAGRELOR
     Indication: Acute myocardial infarction
     Dosage: 2DD90MG/ BRAND NAME NOT SPECIFIED
     Route: 048
     Dates: start: 20250102, end: 20251103

REACTIONS (1)
  - Rectal haemorrhage [Not Recovered/Not Resolved]
